FAERS Safety Report 8472437-5 (Version None)
Quarter: 2012Q2

REPORT INFORMATION
  Report Type: 
  Country: None (occurrence: None)
  Receive Date: 20120627
  Receipt Date: 20120614
  Transmission Date: 20120825
  Serious: Yes (Death, Hospitalization)
  Sender: FDA-Public Use
  Company Number: FR-CELGENEUS-056-21880-12050496

PATIENT
  Age: 85 Year
  Sex: Male

DRUGS (12)
  1. FERROUS SULFATE TAB [Concomitant]
     Route: 065
  2. NEXIUM [Concomitant]
     Route: 065
  3. ARANESP [Concomitant]
     Route: 065
  4. NOVONORM [Concomitant]
     Route: 065
  5. REVLIMID [Suspect]
     Indication: MULTIPLE MYELOMA
     Route: 048
     Dates: end: 20120417
  6. LASIX [Concomitant]
     Route: 065
  7. CALCIT D3 [Concomitant]
     Route: 065
  8. DEDROGYL [Concomitant]
     Route: 065
  9. MODOPAR [Concomitant]
     Route: 065
  10. AMBER [Concomitant]
     Route: 065
  11. VERACOLATE [Concomitant]
     Route: 065
  12. CRESTOR [Concomitant]
     Route: 065

REACTIONS (6)
  - DIABETES MELLITUS INADEQUATE CONTROL [None]
  - GENERAL PHYSICAL HEALTH DETERIORATION [None]
  - BRONCHOPNEUMONIA [None]
  - DEHYDRATION [None]
  - RENAL FAILURE [None]
  - DEATH [None]
